FAERS Safety Report 8103916-8 (Version None)
Quarter: 2012Q1

REPORT INFORMATION
  Report Type: 
  Country: None (occurrence: None)
  Receive Date: 20120201
  Receipt Date: 20120117
  Transmission Date: 20120608
  Serious: Yes (Other)
  Sender: FDA-Public Use
  Company Number: US-WATSON-2012-00985

PATIENT
  Age: 65 Year
  Sex: Female

DRUGS (3)
  1. METRONIDAZOLE [Suspect]
     Dosage: 100MG (DOSE 9)
     Route: 048
  2. METRONIDAZOLE [Suspect]
     Dosage: 250MG (DOSE 10)
     Route: 048
  3. METRONIDAZOLE [Suspect]
     Indication: TRICHOMONIASIS
     Dosage: 25MG (DOSE 7)
     Route: 048

REACTIONS (6)
  - VOMITING [None]
  - NASAL CONGESTION [None]
  - HYPERSENSITIVITY [None]
  - ANAPHYLAXIS PROPHYLAXIS [None]
  - PRURITUS [None]
  - THROAT IRRITATION [None]
